FAERS Safety Report 4898705-1 (Version None)
Quarter: 2006Q1

REPORT INFORMATION
  Report Type: 
  Country: None (occurrence: None)
  Receive Date: 20060130
  Receipt Date: 20060116
  Transmission Date: 20060701
  Serious: Yes (Other)
  Sender: FDA-Public Use
  Company Number: 2006BH000769

PATIENT
  Age: 31 Year
  Sex: Female

DRUGS (2)
  1. PENICILLIN G [Suspect]
     Indication: ALLERGY TEST
     Dosage: ID
  2. AMOXICILLIN [Suspect]
     Indication: ALLERGY TEST
     Dosage: SEE IMAGE
     Route: 048

REACTIONS (5)
  - BLISTER [None]
  - ERYTHEMA [None]
  - PRURITUS GENERALISED [None]
  - RASH GENERALISED [None]
  - SKIN TEST POSITIVE [None]
